FAERS Safety Report 9632070 (Version 2)
Quarter: 2013Q4

REPORT INFORMATION
  Report Type: Report from Study
  Country: US (occurrence: US)
  Receive Date: 20131018
  Receipt Date: 20131023
  Transmission Date: 20140711
  Serious: Yes (Death, Hospitalization)
  Sender: FDA-Public Use
  Company Number: GXBR2013US001809

PATIENT
  Age: 65 Year
  Sex: 0
  Weight: 79.37 kg

DRUGS (8)
  1. ENOXAPARIN SODIUM [Suspect]
     Indication: DEEP VEIN THROMBOSIS
     Dosage: 100 MG, UNK
     Route: 058
     Dates: start: 20130607, end: 20130816
  2. LOMOTIL                            /00034001/ [Concomitant]
     Dosage: UNK DF, UNK
  3. LOVENOX [Concomitant]
     Dosage: UNK DF, UNK
  4. ATIVAN [Concomitant]
     Dosage: UNK DF, UNK
  5. ZOFRAN [Concomitant]
     Dosage: UNK DF, UNK
  6. OXYCODONE [Concomitant]
     Dosage: UNK DF, UNK
  7. COMPAZINE [Concomitant]
     Dosage: UNK DF, UNK
  8. IMITREX ^GLAXO^ [Concomitant]
     Dosage: UNK DF, UNK

REACTIONS (3)
  - Death [Fatal]
  - Cerebral haemorrhage [Unknown]
  - Convulsion [Unknown]
